FAERS Safety Report 9228943 (Version 2)
Quarter: 2013Q2

REPORT INFORMATION
  Report Type: Spontaneous
  Country: AT (occurrence: AT)
  Receive Date: 20130412
  Receipt Date: 20130509
  Transmission Date: 20140414
  Serious: Yes (Life-Threatening, Hospitalization)
  Sender: FDA-Public Use
  Company Number: PHHY2013AT035504

PATIENT
  Age: 79 Year
  Sex: Female
  Weight: 64 kg

DRUGS (14)
  1. EBETREXAT [Suspect]
     Indication: RHEUMATIC DISORDER
     Dosage: 2 DF, UNK
     Route: 048
     Dates: start: 20130325, end: 20130402
  2. RILUTEK [Suspect]
     Indication: AMYOTROPHIC LATERAL SCLEROSIS
     Dosage: 1 DF, BID
     Route: 048
     Dates: start: 20130330, end: 20130402
  3. NOVALGIN [Suspect]
     Indication: MYALGIA
     Dosage: 20 GTT, PRN
     Route: 048
     Dates: start: 20130331
  4. THROMBO ASS [Concomitant]
     Dosage: 1 DF, QD
  5. EUTHYROX [Concomitant]
     Dosage: 0.5 DF, QD
  6. SORTIS [Concomitant]
     Dosage: 1 DF, QD
  7. TRESLEEN [Concomitant]
     Dosage: 1 DF, QD
  8. XALACOM [Concomitant]
     Dosage: 1 DF, BOTH SIDES
  9. FOLSAN [Concomitant]
     Dosage: 1 DF, ON TUESDAY
  10. RAMIPRIL [Concomitant]
     Dosage: 1 DF, QD
  11. GLUCOPHAGE [Concomitant]
     Dosage: 1 DF, QD
  12. MAGNOSOLV [Concomitant]
     Dosage: 1 DF, QD
  13. PANTOLOC [Concomitant]
     Dosage: 1 DF, QD
  14. LATANOPROST W/TIMOLOL STADA [Concomitant]

REACTIONS (9)
  - Drug administration error [Unknown]
  - Thrombocytopenia [Recovered/Resolved]
  - Mucosal inflammation [Recovered/Resolved]
  - Leukopenia [Recovered/Resolved]
  - Pyrexia [Recovered/Resolved]
  - C-reactive protein increased [Recovered/Resolved]
  - Rash [Recovered/Resolved]
  - Skin lesion [Recovered/Resolved]
  - Overdose [Unknown]
